FAERS Safety Report 10233619 (Version 2)
Quarter: 2014Q3

REPORT INFORMATION
  Report Type: Spontaneous
  Country: US (occurrence: US)
  Receive Date: 20140612
  Receipt Date: 20140710
  Transmission Date: 20150326
  Serious: Yes (Disabling)
  Sender: FDA-Public Use
  Company Number: US-BAYER-2014-086594

PATIENT
  Age: 29 Year
  Sex: Female
  Weight: 71.2 kg

DRUGS (2)
  1. ANUSOL-HC [HYDROCORTISONE ACETATE] [Concomitant]
     Indication: HAEMORRHOIDS
     Dosage: 25 MG, 3 TIMES DAILY AS NEEDED
  2. MIRENA [Suspect]
     Active Substance: LEVONORGESTREL
     Indication: CONTRACEPTION
     Dosage: 20 MCG/24HR, CONT
     Route: 015
     Dates: start: 20070904, end: 20090911

REACTIONS (5)
  - Uterine perforation [None]
  - Anhedonia [None]
  - Emotional distress [None]
  - Injury [None]
  - Pain [None]

NARRATIVE: CASE EVENT DATE: 200908
